FAERS Safety Report 16004028 (Version 2)
Quarter: 2019Q1

REPORT INFORMATION
  Report Type: Spontaneous
  Country: ES (occurrence: ES)
  Receive Date: 20190225
  Receipt Date: 20190225
  Transmission Date: 20190418
  Serious: Yes (Life-Threatening, Hospitalization)
  Sender: FDA-Public Use
  Company Number: ES-ACCORD-108704

PATIENT
  Age: 55 Year
  Sex: Male

DRUGS (5)
  1. BENEXOL [Concomitant]
     Active Substance: CYANOCOBALAMIN\PYRIDOXINE\THIAMINE
     Route: 048
     Dates: start: 20180714, end: 20180714
  2. PHENOBARBITAL. [Interacting]
     Active Substance: PHENOBARBITAL
     Route: 048
     Dates: start: 20180714, end: 20180714
  3. LITHIUM. [Interacting]
     Active Substance: LITHIUM
     Route: 048
     Dates: start: 20180714, end: 20180714
  4. LORMETAZEPAM [Interacting]
     Active Substance: LORMETAZEPAM
     Route: 048
     Dates: start: 20180714, end: 20180714
  5. CLONAZEPAM. [Suspect]
     Active Substance: CLONAZEPAM
     Route: 048
     Dates: start: 20180714, end: 20180714

REACTIONS (7)
  - Hyperreflexia [Recovered/Resolved]
  - Tremor [Recovered/Resolved]
  - Somnolence [Recovered/Resolved]
  - Drug interaction [Unknown]
  - Intentional self-injury [Unknown]
  - Vomiting [Recovered/Resolved]
  - Suicide attempt [Unknown]

NARRATIVE: CASE EVENT DATE: 20180716
